FAERS Safety Report 6434480-7 (Version None)
Quarter: 2009Q4

REPORT INFORMATION
  Report Type: 
  Country: None (occurrence: None)
  Receive Date: 20091110
  Receipt Date: 20091029
  Transmission Date: 20100525
  Serious: Yes (Death, Hospitalization)
  Sender: FDA-Public Use
  Company Number: KR-PFIZER INC-2009203661

PATIENT
  Age: 17 Year
  Sex: Male
  Weight: 57 kg

DRUGS (22)
  1. VORICONAZOLE [Suspect]
     Indication: ASPERGILLOSIS
     Dosage: 300 MG, 2X/DAY
     Dates: start: 20080814, end: 20080814
  2. VORICONAZOLE [Suspect]
     Dosage: 200 MG, 2X/DAY
     Dates: start: 20080815, end: 20080819
  3. VORICONAZOLE [Suspect]
     Dosage: 300 MG, 2X/DAY
     Dates: start: 20080823, end: 20080915
  4. VORICONAZOLE [Suspect]
     Dosage: 200 MG, 2X/DAY
     Dates: start: 20080916, end: 20080917
  5. TYLENOL [Concomitant]
     Indication: PAIN
     Dosage: UNK MG, UNK
     Route: 048
  6. CODEINE [Concomitant]
     Indication: PAIN
     Dosage: UNK
     Route: 048
  7. DEFERASIROX [Concomitant]
     Indication: ANAEMIA
     Dosage: UNK
     Route: 048
  8. GANATON [Concomitant]
     Indication: GASTROINTESTINAL DISORDER
     Dosage: UNK
     Route: 048
  9. BIPHENYL DIMETHYL DICARBOXYLATE [Concomitant]
     Indication: HEPATIC FUNCTION ABNORMAL
     Dosage: UNK
     Route: 048
  10. ALL OTHER THERAPEUTIC PRODUCTS [Concomitant]
     Indication: DYSPEPSIA
     Dosage: UNK
     Route: 048
  11. ALUMINUM MAGNESIUM SILICATE/ALUMINUM CALCIUM SILICATE [Concomitant]
     Indication: DYSPEPSIA
     Dosage: UNK
     Route: 048
  12. PHAZYME-95 [Concomitant]
     Indication: DYSPEPSIA
     Dosage: UNK
     Route: 048
  13. URSODEOXYCHOLIC ACID [Concomitant]
     Indication: HEPATIC FUNCTION ABNORMAL
     Dosage: UNK
     Route: 048
  14. ALL OTHER THERAPEUTIC PRODUCTS [Concomitant]
     Indication: INFECTION
     Dosage: UNK
     Route: 048
  15. TEPRENONE [Concomitant]
     Indication: ABDOMINAL DISCOMFORT
     Dosage: UNK
     Route: 048
  16. NEUTROGIN [Concomitant]
     Indication: NEUTROPENIA
     Dosage: UNK
     Route: 042
  17. TAZOCIN [Concomitant]
     Indication: INFECTION
     Dosage: UNK
     Route: 030
  18. ALL OTHER THERAPEUTIC PRODUCTS [Concomitant]
     Indication: GRAFT VERSUS HOST DISEASE
     Dosage: UNK
     Route: 042
  19. NISOLONE [Concomitant]
     Indication: RASH
     Dosage: UNK
     Route: 048
  20. TRAMADOL [Concomitant]
     Indication: PAIN
     Dosage: UNK
     Route: 030
  21. METOCLOPRAMIDE [Concomitant]
     Indication: NAUSEA
     Dosage: UNK
     Route: 048
  22. CIPRO [Concomitant]
     Indication: ANTIBIOTIC THERAPY
     Dosage: UNK
     Route: 048
     Dates: start: 20080814, end: 20080817

REACTIONS (2)
  - PNEUMONIA [None]
  - RASH [None]
